FAERS Safety Report 9347968 (Version 4)
Quarter: 2013Q3

REPORT INFORMATION
  Report Type: Spontaneous
  Country: US (occurrence: US)
  Receive Date: 20130614
  Receipt Date: 20130909
  Transmission Date: 20140515
  Serious: Yes (Hospitalization, Other)
  Sender: FDA-Public Use
  Company Number: US-SANOFI-AVENTIS-2013SA058692

PATIENT
  Age: 46 Year
  Sex: Male

DRUGS (2)
  1. LANTUS SOLOSTAR [Suspect]
     Dosage: DOSE:35 UNIT(S)
     Route: 058
  2. SOLOSTAR [Suspect]

REACTIONS (13)
  - Pancreatitis chronic [Unknown]
  - Cardiac disorder [Unknown]
  - Hypertension [Unknown]
  - Renal disorder [Unknown]
  - Generalised oedema [Unknown]
  - Swelling [Unknown]
  - Localised oedema [Unknown]
  - Dysgeusia [Recovered/Resolved]
  - Eructation [Unknown]
  - Asthenia [Unknown]
  - Blood glucose increased [Unknown]
  - Injection site bruising [Recovered/Resolved]
  - Pain in extremity [Recovered/Resolved]
